FAERS Safety Report 9457337 (Version 1)
Quarter: 2013Q3

REPORT INFORMATION
  Report Type: Spontaneous
  Country: FR (occurrence: FR)
  Receive Date: 20130814
  Receipt Date: 20130814
  Transmission Date: 20140515
  Serious: Yes (Disabling)
  Sender: FDA-Public Use
  Company Number: PHHY2013FR086229

PATIENT
  Age: 51 Year
  Sex: Male

DRUGS (1)
  1. ZOMETA [Suspect]
     Indication: PROSTATE CANCER METASTATIC
     Dosage: UNK UKN, UNK
     Route: 042
     Dates: start: 20120730, end: 20130207

REACTIONS (1)
  - Osteonecrosis of jaw [Recovered/Resolved]
